FAERS Safety Report 18266773 (Version 1)
Quarter: 2020Q3

REPORT INFORMATION
  Report Type: Spontaneous
  Country: CA (occurrence: CA)
  Receive Date: 20200915
  Receipt Date: 20200915
  Transmission Date: 20201103
  Serious: Yes (Other)
  Sender: FDA-Public Use
  Company Number: CA-ACCORD-200839

PATIENT
  Age: 56 Year
  Sex: Female

DRUGS (3)
  1. FUROSEMIDE. [Concomitant]
     Active Substance: FUROSEMIDE
     Indication: CARDIAC FAILURE CONGESTIVE
  2. METHOTREXATE. [Suspect]
     Active Substance: METHOTREXATE
     Indication: DERMATITIS ATOPIC
     Dosage: HIGH DOSE
     Route: 048
  3. METHOTREXATE. [Suspect]
     Active Substance: METHOTREXATE
     Indication: DERMATITIS EXFOLIATIVE GENERALISED
     Dosage: HIGH DOSE
     Route: 048

REACTIONS (5)
  - Pancytopenia [Unknown]
  - Incorrect dose administered [Unknown]
  - Skin necrosis [Recovered/Resolved]
  - Neutropenia [Recovered/Resolved]
  - Skin ulcer [Recovered/Resolved]
